FAERS Safety Report 8594756 (Version 2)
Quarter: 2013Q4

REPORT INFORMATION
  Report Type: Spontaneous
  Country: US (occurrence: US)
  Receive Date: 20120604
  Receipt Date: 20131118
  Transmission Date: 20140711
  Serious: No
  Sender: FDA-Public Use
  Company Number: US-JNJFOC-20120600853

PATIENT
  Age: 47 Year
  Sex: Female
  Weight: 49.9 kg

DRUGS (2)
  1. DURAGESIC [Suspect]
     Indication: FIBROMYALGIA
     Route: 062
     Dates: start: 2005, end: 2008
  2. DURAGESIC [Suspect]
     Indication: FIBROMYALGIA
     Route: 062
     Dates: start: 2008

REACTIONS (3)
  - Breakthrough pain [Not Recovered/Not Resolved]
  - Hypokinesia [Not Recovered/Not Resolved]
  - Poor quality drug administered [Unknown]
